FAERS Safety Report 7001638-8 (Version None)
Quarter: 2010Q3

REPORT INFORMATION
  Report Type: 
  Country: None (occurrence: None)
  Receive Date: 20100920
  Receipt Date: 20100910
  Transmission Date: 20110219
  Serious: Yes (Hospitalization)
  Sender: FDA-Public Use
  Company Number: US-JNJFOC-20100605765

PATIENT
  Sex: Female
  Weight: 79.38 kg

DRUGS (2)
  1. TYLENOL EXTRA STRENGTH RAPID RELEASE [Suspect]
     Route: 048
  2. TYLENOL EXTRA STRENGTH RAPID RELEASE [Suspect]
     Indication: HEADACHE
     Route: 048

REACTIONS (5)
  - ABDOMINAL PAIN UPPER [None]
  - HEADACHE [None]
  - NAUSEA [None]
  - PRODUCT QUALITY ISSUE [None]
  - VERTIGO [None]
